FAERS Safety Report 10952699 (Version 1)
Quarter: 2015Q1

REPORT INFORMATION
  Report Type: Report from Study
  Country: GB (occurrence: GB)
  Receive Date: 20150325
  Receipt Date: 20150325
  Transmission Date: 20150721
  Serious: Yes (Death)
  Sender: FDA-Public Use
  Company Number: GB-JNJFOC-20150314175

PATIENT
  Sex: Male
  Weight: 94.4 kg

DRUGS (7)
  1. CAPECITABINE. [Concomitant]
     Active Substance: CAPECITABINE
     Route: 065
     Dates: start: 20141205
  2. USTEKINUMAB [Suspect]
     Active Substance: USTEKINUMAB
     Indication: PSORIASIS
     Route: 058
     Dates: start: 20120806, end: 20140415
  3. DEXAMETHASONE. [Concomitant]
     Active Substance: DEXAMETHASONE
     Route: 065
     Dates: start: 20141205
  4. TRASTUZUMAB [Concomitant]
     Active Substance: TRASTUZUMAB
     Route: 065
     Dates: start: 20141205
  5. COCODAMOL [Concomitant]
     Active Substance: ACETAMINOPHEN\CODEINE PHOSPHATE
     Route: 065
     Dates: start: 20141205
  6. CITALOPRAM [Concomitant]
     Active Substance: CITALOPRAM HYDROBROMIDE
     Route: 003
     Dates: start: 20141205
  7. CARBOPLATIN. [Concomitant]
     Active Substance: CARBOPLATIN
     Route: 065
     Dates: start: 20141205

REACTIONS (1)
  - Gastric cancer [Fatal]
